FAERS Safety Report 8874480 (Version 2)
Quarter: 2012Q4

REPORT INFORMATION
  Report Type: 
  Country: BR (occurrence: BR)
  Receive Date: 20121031
  Receipt Date: 20121214
  Transmission Date: 20130627
  Serious: Yes (Other)
  Sender: FDA-Public Use
  Company Number: BR-AMGEN-BRASP2012032897

PATIENT
  Age: 39 Year
  Sex: Female
  Weight: 86 kg

DRUGS (14)
  1. ENBREL [Suspect]
     Indication: RHEUMATOID ARTHRITIS
     Dosage: 50 mg, weekly
     Route: 058
     Dates: start: 20100121, end: 201210
  2. METHOTREXATE [Concomitant]
     Dosage: 25 mg, weekly
  3. CALCIUM [Concomitant]
     Dosage: one tablet once daily
  4. ATENOLOL [Concomitant]
     Indication: HYPERTENSION
     Dosage: 25 mg, 1x/day
  5. HYDROCHLOROTHIAZIDE [Concomitant]
     Indication: HYPERTENSION
     Dosage: 25 mg, 1x/day
  6. CALCIUM CARBONATE W/COLECALCIFEROL [Concomitant]
     Dosage: [1250 mg calcium carbonate + 400 IU colecalciferol] 1x/day
  7. PREDNISONE [Concomitant]
     Dosage: 5 mg, 1x/day
  8. FOLIC ACID [Concomitant]
     Dosage: 0.5 mg, qd at night
  9. CYCLOBENZAPRINE [Concomitant]
     Dosage: 5 mg, 1x/day at night
  10. ACETAMINOPHEN [Concomitant]
     Dosage: 500 mg, 1x/day at night
  11. FAMOTIDINE [Concomitant]
     Dosage: 40 mg, 1x/day at night
  12. DIACEREIN [Concomitant]
     Dosage: 50 mg, 1x/day at night
  13. NORTRIPTYLINE [Concomitant]
     Dosage: 25 mg, 1x/day at night
  14. OMEPRAZOLE [Concomitant]
     Dosage: UNK

REACTIONS (4)
  - Wrong technique in drug usage process [Unknown]
  - Erysipelas [Unknown]
  - Injection site swelling [Unknown]
  - Injection site pain [Unknown]
